FAERS Safety Report 6368448-6 (Version None)
Quarter: 2009Q3

REPORT INFORMATION
  Report Type: 
  Country: None (occurrence: None)
  Receive Date: 20090916
  Receipt Date: 20090904
  Transmission Date: 20100115
  Serious: No
  Sender: FDA-Public Use
  Company Number: 2009010192

PATIENT
  Sex: Female

DRUGS (3)
  1. FENTORA [Suspect]
     Indication: COMPLEX REGIONAL PAIN SYNDROME
     Dosage: 600 MCG, 03-4 HRS PRN, BU; 800 MCG, Q-3-4 HRS PRN; BU
     Route: 002
     Dates: start: 20050101, end: 20090901
  2. FENTORA [Suspect]
     Indication: COMPLEX REGIONAL PAIN SYNDROME
     Dosage: 600 MCG, 03-4 HRS PRN, BU; 800 MCG, Q-3-4 HRS PRN; BU
     Route: 002
     Dates: start: 20090901
  3. MORPHINE [Concomitant]

REACTIONS (1)
  - DRUG PRESCRIBING ERROR [None]
